FAERS Safety Report 8110692-1 (Version None)
Quarter: 2012Q1

REPORT INFORMATION
  Report Type: 
  Country: None (occurrence: None)
  Receive Date: 20120203
  Receipt Date: 20120126
  Transmission Date: 20120608
  Serious: Yes (Hospitalization)
  Sender: FDA-Public Use
  Company Number: US-BAYER-2011-042270

PATIENT
  Age: 47 Year
  Sex: Female
  Weight: 84 kg

DRUGS (28)
  1. IBUPROFEN (ADVIL) [Concomitant]
     Dosage: UNK
     Dates: start: 20090514
  2. YASMIN [Suspect]
     Indication: OVARIAN CYST
     Dosage: UNK
     Dates: start: 20040901, end: 20050101
  3. MAXALT [Concomitant]
     Indication: HEADACHE
     Dosage: UNK
     Dates: start: 20090312, end: 20090626
  4. PROZAC [Concomitant]
  5. DROSPIRENONE AND ETHINYL ESTRADIOL [Suspect]
     Indication: MENSTRUATION IRREGULAR
  6. CLONAZEPAM [Concomitant]
     Indication: PANIC REACTION
  7. IBUPROFEN [Concomitant]
     Indication: ARTHRALGIA
     Dosage: UNK
     Dates: start: 20090826, end: 20090915
  8. NAPROXEN (ALEVE) [Concomitant]
     Dosage: UNK
     Dates: start: 20090701
  9. YASMIN [Suspect]
     Indication: PREMENSTRUAL SYNDROME
     Dosage: UNK
     Dates: start: 20020101, end: 20090101
  10. YASMIN [Suspect]
     Indication: DYSMENORRHOEA
     Dosage: UNK
     Dates: start: 20051001, end: 20070401
  11. DROSPIRENONE AND ETHINYL ESTRADIOL [Suspect]
     Indication: PREMENSTRUAL SYNDROME
     Dosage: UNK
     Dates: start: 20080101
  12. CLONAZEPAM [Concomitant]
     Indication: ANXIETY
     Dosage: UNK
     Dates: start: 20080101, end: 20091031
  13. TRAMADOL HCL [Concomitant]
     Indication: ARTHRALGIA
     Dosage: UNK
     Dates: start: 20081212, end: 20090513
  14. DROSPIRENONE AND ETHINYL ESTRADIOL [Suspect]
     Indication: OVARIAN CYST
  15. CYCLOBENZAPRINE [Concomitant]
     Indication: ARTHRALGIA
     Dosage: UNK
     Dates: start: 20001213, end: 20090921
  16. DEPO-MEDROL [Concomitant]
     Indication: OSTEOARTHRITIS
     Dosage: UNK
     Dates: start: 20090904
  17. DARVOCET [Concomitant]
     Dosage: UNK
     Dates: start: 20090701
  18. XANAX [Concomitant]
  19. FLUOXETINE [Concomitant]
     Indication: DEPRESSION
     Dosage: UNK
     Dates: start: 20010101, end: 20090521
  20. WELLBUTRIN [Concomitant]
  21. PROPOXYPHENE NAPSYLATE W/PARACETAMOL [Concomitant]
     Indication: ARTHRALGIA
     Dosage: UNK
     Dates: start: 20080721, end: 20090925
  22. PSEUDOEPHEDRINE HCL [Concomitant]
     Dosage: UNK
     Dates: start: 20090514
  23. ZOLOFT [Concomitant]
  24. YASMIN [Suspect]
     Indication: MENSTRUATION IRREGULAR
     Dosage: UNK
     Dates: start: 20080601, end: 20090901
  25. SUMATRIPTAN [Concomitant]
     Dosage: UNK
     Dates: start: 20090527
  26. BUSPIRONE HCL [Concomitant]
     Dosage: UNK
     Dates: start: 20090615
  27. HYCOSAMINE [Concomitant]
  28. EFFEXOR [Concomitant]

REACTIONS (7)
  - PAIN [None]
  - PERIPHERAL ISCHAEMIA [None]
  - EMOTIONAL DISTRESS [None]
  - CYANOSIS [None]
  - DRUG HYPERSENSITIVITY [None]
  - ARTERIAL THROMBOSIS [None]
  - ANXIETY [None]
